FAERS Safety Report 7179318-8 (Version None)
Quarter: 2010Q4

REPORT INFORMATION
  Report Type: 
  Country: None (occurrence: None)
  Receive Date: 20101221
  Receipt Date: 20101209
  Transmission Date: 20110411
  Serious: Yes (Other)
  Sender: FDA-Public Use
  Company Number: PHHY2010FR83831

PATIENT
  Age: 60 Year
  Sex: Female

DRUGS (3)
  1. TEGRETOL [Suspect]
     Indication: DEPRESSION
     Dosage: 400 MG, BID
     Route: 048
  2. AMOXICILLIN [Interacting]
     Dosage: UNK
  3. AUGMENTIN '125' [Interacting]
     Dosage: UNK

REACTIONS (5)
  - BRONCHITIS [None]
  - CONVULSION [None]
  - DRUG INTERACTION [None]
  - PYREXIA [None]
  - URINARY TRACT INFECTION [None]
